FAERS Safety Report 9735468 (Version 1)
Quarter: 2013Q4

REPORT INFORMATION
  Report Type: Spontaneous
  Country: US (occurrence: US)
  Receive Date: 20131206
  Receipt Date: 20131206
  Transmission Date: 20140711
  Serious: No
  Sender: FDA-Public Use
  Company Number: US-GILEAD-2009-0023258

PATIENT
  Age: 88 Year
  Sex: Male

DRUGS (10)
  1. LETAIRIS [Suspect]
     Indication: PULMONARY ARTERIAL HYPERTENSION
     Route: 048
     Dates: start: 20090716
  2. TOPROL XL [Concomitant]
  3. DIGOXIN [Concomitant]
  4. SIMVASTATIN [Concomitant]
  5. ASPIRIN [Concomitant]
  6. LISINOPRIL [Concomitant]
  7. AMLODAPINE [Concomitant]
  8. FUROSEMIDE [Concomitant]
  9. PRILSOEC [Concomitant]
  10. FOSAMAX [Concomitant]

REACTIONS (4)
  - Dizziness postural [Unknown]
  - Feeling abnormal [Unknown]
  - Pharyngitis [Unknown]
  - Hypotension [Unknown]
